FAERS Safety Report 8853005 (Version 1)
Quarter: 2012Q4

REPORT INFORMATION
  Report Type: 
  Country: US (occurrence: US)
  Receive Date: 20121022
  Receipt Date: 20121022
  Transmission Date: 20130627
  Serious: No
  Sender: FDA-Public Use
  Company Number: US-009507513-1210USA008939

PATIENT
  Age: 44 Year
  Sex: Female

DRUGS (4)
  1. SAPHRIS [Suspect]
     Indication: BIPOLAR DISORDER
     Dosage: 10 mg, qd
     Route: 060
     Dates: start: 20120920, end: 20121003
  2. SEROQUEL XR [Concomitant]
  3. EFFEXOR [Concomitant]
  4. LITHIUM [Concomitant]

REACTIONS (1)
  - Oedema peripheral [Recovered/Resolved]
